FAERS Safety Report 11613687 (Version 1)
Quarter: 2015Q4

REPORT INFORMATION
  Report Type: Spontaneous
  Country: TW (occurrence: TW)
  Receive Date: 20151008
  Receipt Date: 20151008
  Transmission Date: 20160304
  Serious: Yes (Death, Hospitalization)
  Sender: FDA-Public Use
  Company Number: TW-ASTRAZENECA-2015SE91226

PATIENT
  Age: 80 Year
  Sex: Female

DRUGS (2)
  1. BRILINTA [Suspect]
     Active Substance: TICAGRELOR
     Route: 048
     Dates: start: 20150301, end: 20150305
  2. ASPIRIN. [Concomitant]
     Active Substance: ASPIRIN
     Route: 048

REACTIONS (2)
  - Pulmonary haemorrhage [Fatal]
  - Lung infection [Fatal]

NARRATIVE: CASE EVENT DATE: 20150305
